FAERS Safety Report 5957721-9 (Version None)
Quarter: 2008Q4

REPORT INFORMATION
  Report Type: 
  Country: None (occurrence: None)
  Receive Date: 20081107
  Receipt Date: 20081028
  Transmission Date: 20090506
  Serious: Yes (Hospitalization)
  Sender: FDA-Public Use
  Company Number: 2006BI016084

PATIENT
  Age: 63 Year
  Sex: Female

DRUGS (4)
  1. AVONEX [Suspect]
     Indication: MULTIPLE SCLEROSIS
     Dosage: 30 UG;QW;IM
     Route: 030
     Dates: start: 20021026
  2. DIOVAN [Concomitant]
  3. CALCIUM [Concomitant]
  4. ASPIRIN [Concomitant]

REACTIONS (3)
  - LUMBAR SPINAL STENOSIS [None]
  - RADICULOPATHY [None]
  - SPONDYLITIS [None]
